FAERS Safety Report 6148037-9 (Version None)
Quarter: 2009Q2

REPORT INFORMATION
  Report Type: 
  Country: None (occurrence: None)
  Receive Date: 20090408
  Receipt Date: 20090331
  Transmission Date: 20091009
  Serious: Yes (Congenital Anomaly)
  Sender: FDA-Public Use
  Company Number: A0680558A

PATIENT
  Sex: Male
  Weight: 4 kg

DRUGS (8)
  1. PAXIL [Suspect]
     Indication: ANXIETY
     Dosage: 20MG UNKNOWN
  2. VITAMIN TAB [Concomitant]
  3. AVANDIA [Concomitant]
  4. ALDOMET [Concomitant]
     Dosage: 500MG PER DAY
  5. PROCARDIA [Concomitant]
     Dosage: 20MG THREE TIMES PER DAY
  6. ULTRALENTE [Concomitant]
     Dosage: 3UNIT TWICE PER DAY
  7. HUMULIN N [Concomitant]
  8. HUMALOG [Concomitant]

REACTIONS (7)
  - CARDIOMEGALY [None]
  - CONGENITAL AORTIC VALVE INCOMPETENCE [None]
  - DRUG EXPOSURE DURING PREGNANCY [None]
  - HEART DISEASE CONGENITAL [None]
  - MULTIPLE CONGENITAL ABNORMALITIES [None]
  - VENTRICULAR HYPERTROPHY [None]
  - VENTRICULAR SEPTAL DEFECT [None]
